FAERS Safety Report 23189165 (Version 1)
Quarter: 2023Q4

REPORT INFORMATION
  Report Type: Report from Study
  Country: GB (occurrence: GB)
  Receive Date: 20231115
  Receipt Date: 20231115
  Transmission Date: 20240110
  Serious: Yes (Other)
  Sender: FDA-Public Use
  Company Number: GB-CELLTRION INC.-2023GB021880

PATIENT

DRUGS (3)
  1. INFLIXIMAB [Suspect]
     Active Substance: INFLIXIMAB
     Indication: Product used for unknown indication
     Dosage: UNKNOWN
     Route: 065
  2. IMRALDI [Suspect]
     Active Substance: ADALIMUMAB
     Indication: Crohn^s disease
     Dosage: 40 MG, Q2WEEKS (40 MG/0.8 ML;)
     Route: 058
  3. IMRALDI [Suspect]
     Active Substance: ADALIMUMAB
     Dosage: 40 MG, 1/WEEK (40 MG/0.8 ML;)
     Route: 058

REACTIONS (3)
  - Hyperthyroidism [Unknown]
  - Drug hypersensitivity [Unknown]
  - Therapeutic product effect decreased [Unknown]
